FAERS Safety Report 7686530-8 (Version None)
Quarter: 2011Q3

REPORT INFORMATION
  Report Type: 
  Country: None (occurrence: None)
  Receive Date: 20110816
  Receipt Date: 20110608
  Transmission Date: 20111222
  Serious: No
  Sender: FDA-Public Use
  Company Number: US-BAYER-2011-050115

PATIENT
  Age: 18 Year
  Sex: Female

DRUGS (2)
  1. MIRENA [Suspect]
     Dosage: DAILY DOSE 20 ?G/D
     Route: 015
     Dates: start: 20110501, end: 20110524
  2. MIRENA [Suspect]
     Dosage: DAILY DOSE 20 ?G/D
     Route: 015
     Dates: start: 20110501, end: 20110518

REACTIONS (1)
  - DEVICE EXPULSION [None]
